FAERS Safety Report 5601543-5 (Version None)
Quarter: 2008Q1

REPORT INFORMATION
  Report Type: 
  Country: None (occurrence: None)
  Receive Date: 20080124
  Receipt Date: 20080117
  Transmission Date: 20080703
  Serious: Yes (Hospitalization)
  Sender: FDA-Public Use
  Company Number: US-GENENTECH-250818

PATIENT
  Sex: Male
  Weight: 70.975 kg

DRUGS (10)
  1. BEVACIZUMAB [Suspect]
     Indication: OESOPHAGEAL CARCINOMA
     Dosage: 15 MG/KG, DAYS 1+22
     Dates: start: 20070927
  2. ERLOTINIB [Suspect]
     Indication: OESOPHAGEAL CARCINOMA
     Dosage: 1000 MG, QD
     Dates: start: 20070927
  3. FLUOROURACIL [Suspect]
     Indication: OESOPHAGEAL CARCINOMA
     Dosage: 225 MG, UNK
     Dates: start: 20070927
  4. CARBOPLATIN [Suspect]
     Indication: OESOPHAGEAL CARCINOMA
     Dosage: UNK, DAYS 1+22
     Dates: start: 20070927
  5. PACLITAXEL [Suspect]
     Indication: OESOPHAGEAL CARCINOMA
     Dosage: 200 MG/M2, DAYS 1+22
     Dates: start: 20070927
  6. RADIATION THERAPY [Suspect]
     Indication: OESOPHAGEAL CARCINOMA
  7. PROTONIX [Concomitant]
     Indication: DRUG USE FOR UNKNOWN INDICATION
     Dosage: 40 MG, UNK
     Dates: start: 20071004
  8. LORTAB [Concomitant]
     Indication: DRUG USE FOR UNKNOWN INDICATION
  9. OXYCODONE [Concomitant]
     Indication: DRUG USE FOR UNKNOWN INDICATION
     Dosage: 5 MG, Q6H
  10. VALIUM [Concomitant]
     Indication: DRUG USE FOR UNKNOWN INDICATION
     Dosage: 5 MG, QHS

REACTIONS (4)
  - ABDOMINAL PAIN UPPER [None]
  - ATRIAL FIBRILLATION [None]
  - DEHYDRATION [None]
  - SEPSIS [None]
